FAERS Safety Report 11505971 (Version 1)
Quarter: 2015Q3

REPORT INFORMATION
  Report Type: Spontaneous
  Country: US (occurrence: US)
  Receive Date: 20150915
  Receipt Date: 20150915
  Transmission Date: 20151125
  Serious: No
  Sender: FDA-Public Use
  Company Number: US-ROCHE-803433

PATIENT
  Age: 55 Year
  Sex: Female

DRUGS (1)
  1. PEGASYS [Suspect]
     Active Substance: PEGINTERFERON ALFA-2A
     Indication: HEPATITIS C
     Dosage: DATES OF USE: 1.5 MONTHS
     Route: 065

REACTIONS (2)
  - Wrong technique in product usage process [Unknown]
  - Procedural complication [Unknown]

NARRATIVE: CASE EVENT DATE: 20110909
